APPROVED DRUG PRODUCT: LEVOCARNITINE
Active Ingredient: LEVOCARNITINE
Strength: 330MG
Dosage Form/Route: TABLET;ORAL
Application: A076858 | Product #001 | TE Code: AB
Applicant: RISING PHARMA HOLDINGS INC
Approved: Sep 20, 2004 | RLD: No | RS: No | Type: RX